FAERS Safety Report 18292966 (Version 4)
Quarter: 2020Q4

REPORT INFORMATION
  Report Type: Report from Study
  Country: US (occurrence: US)
  Receive Date: 20200922
  Receipt Date: 20201120
  Transmission Date: 20210113
  Serious: No
  Sender: FDA-Public Use
  Company Number: NVSC2020US255411

PATIENT
  Age: 23 Year
  Sex: Female

DRUGS (2)
  1. ILARIS [Suspect]
     Active Substance: CANAKINUMAB
     Indication: CRYOPYRIN ASSOCIATED PERIODIC SYNDROME
     Dosage: 600 MG, Q3W
     Route: 058
     Dates: start: 20150801
  2. ILARIS [Suspect]
     Active Substance: CANAKINUMAB
     Dosage: 600 MG, Q3W
     Route: 058

REACTIONS (6)
  - Oropharyngeal pain [Unknown]
  - Malaise [Unknown]
  - Vomiting [Unknown]
  - Hyperhidrosis [Unknown]
  - Chills [Unknown]
  - Inappropriate schedule of product administration [Unknown]

NARRATIVE: CASE EVENT DATE: 20200911
